FAERS Safety Report 17935248 (Version 1)
Quarter: 2020Q2

REPORT INFORMATION
  Report Type: Report from Study
  Country: CN (occurrence: CN)
  Receive Date: 20200624
  Receipt Date: 20200624
  Transmission Date: 20200714
  Serious: Yes (Other)
  Sender: FDA-Public Use
  Company Number: CN-ROCHE-2624583

PATIENT

DRUGS (3)
  1. BEVACIZUMAB. [Suspect]
     Active Substance: BEVACIZUMAB
     Dosage: 1ST, 15TH AND 29TH DAYS,
     Route: 065
  2. CAPECITABINE. [Suspect]
     Active Substance: CAPECITABINE
     Indication: RECTAL CANCER
     Dosage: ON THE 1ST TO 14TH DAYS AND ON THE 22ND TO 35TH DAYS AFTER RADIOTHERAPY.
     Route: 048
  3. BEVACIZUMAB. [Suspect]
     Active Substance: BEVACIZUMAB
     Indication: RECTAL CANCER
     Dosage: 14 DAY BEFORE RADIOTHERAPY.
     Route: 065

REACTIONS (23)
  - Haemorrhage [Unknown]
  - Pelvic infection [Unknown]
  - Anastomotic fistula [Unknown]
  - Anaemia [Unknown]
  - Pollakiuria [Unknown]
  - Neuropathy peripheral [Unknown]
  - Cachexia [Unknown]
  - Palmar-plantar erythrodysaesthesia syndrome [Unknown]
  - Vomiting [Unknown]
  - Hypertension [Unknown]
  - Decreased appetite [Unknown]
  - Neuritis [Unknown]
  - Diarrhoea [Unknown]
  - Constipation [Unknown]
  - Impaired healing [Unknown]
  - Pain [Unknown]
  - Nausea [Unknown]
  - Insomnia [Unknown]
  - Proctitis [Unknown]
  - Infection [Unknown]
  - Gastrointestinal haemorrhage [Unknown]
  - Fatigue [Unknown]
  - Fistula [Unknown]
